FAERS Safety Report 4954606-1 (Version None)
Quarter: 2006Q1

REPORT INFORMATION
  Report Type: 
  Country: None (occurrence: None)
  Receive Date: 20060327
  Receipt Date: 20060308
  Transmission Date: 20060701
  Serious: Yes (Death)
  Sender: FDA-Public Use
  Company Number: JP-ROCHE-439862

PATIENT
  Age: 51 Year
  Sex: Male
  Weight: 59 kg

DRUGS (3)
  1. TAMIFLU [Suspect]
     Route: 048
  2. TAMIFLU [Suspect]
     Route: 048
     Dates: start: 20060307, end: 20060307
  3. NAPA [Concomitant]
     Route: 048
     Dates: start: 20060304, end: 20060307

REACTIONS (2)
  - COMPLETED SUICIDE [None]
  - PSYCHIATRIC SYMPTOM [None]
